FAERS Safety Report 8296693-1 (Version None)
Quarter: 2012Q2

REPORT INFORMATION
  Report Type: 
  Country: None (occurrence: None)
  Receive Date: 20120418
  Receipt Date: 20120128
  Transmission Date: 20120825
  Serious: Yes (Hospitalization)
  Sender: FDA-Public Use
  Company Number: HU-BAXTER-2012BH003001

PATIENT
  Age: 34 Year
  Sex: Female

DRUGS (4)
  1. VITAMIN D [Concomitant]
     Route: 065
  2. DIANEAL PD4 GLUCOSE 1,36% PERITONEALIS DIALIZALO OLDAT [Suspect]
     Route: 033
     Dates: start: 20101129
  3. EXTRANEAL PERITONEALIS DIALIZALO OLDAT [Suspect]
     Route: 033
     Dates: start: 20101129
  4. EPOGEN [Concomitant]
     Route: 065

REACTIONS (1)
  - NONINFECTIOUS PERITONITIS [None]
